FAERS Safety Report 5742505-7 (Version None)
Quarter: 2008Q2

REPORT INFORMATION
  Report Type: 
  Country: None (occurrence: None)
  Receive Date: 20080515
  Receipt Date: 20080501
  Transmission Date: 20081010
  Serious: Yes (Hospitalization)
  Sender: FDA-Public Use
  Company Number: 2008S1007624

PATIENT
  Age: 33 Year
  Sex: Female

DRUGS (3)
  1. AZATHIOPRINE [Suspect]
     Indication: SYSTEMIC LUPUS ERYTHEMATOSUS
     Dosage: 100 MG; ORAL; DAILY
     Route: 048
  2. METHYLPREDNISOLONE [Suspect]
     Indication: SYSTEMIC LUPUS ERYTHEMATOSUS
     Dosage: 500 MG;INTRAVENOUS;DAILY
     Route: 042
  3. PREDNISOLONE [Suspect]
     Indication: SYSTEMIC LUPUS ERYTHEMATOSUS
     Dosage: 1 MG/KG;ORAL;DAILY
     Route: 048

REACTIONS (3)
  - BRONCHOPULMONARY ASPERGILLOSIS [None]
  - PNEUMONIA CRYPTOCOCCAL [None]
  - PNEUMOTHORAX [None]
